FAERS Safety Report 7328081-6 (Version None)
Quarter: 2011Q1

REPORT INFORMATION
  Report Type: 
  Country: None (occurrence: None)
  Receive Date: 20110303
  Receipt Date: 20110223
  Transmission Date: 20110831
  Serious: Yes (Hospitalization, Other)
  Sender: FDA-Public Use
  Company Number: CZ-NOVOPROD-322641

PATIENT
  Sex: Female
  Weight: 68 kg

DRUGS (6)
  1. LISPRO INSULIN [Suspect]
     Dosage: 100 IU, QD (10+30+30+30)
  2. IRON COMPOUND [Concomitant]
     Indication: ANAEMIA OF PREGNANCY
  3. LEVEMIR [Suspect]
     Dosage: 76 IU, QD (36+0+0+40)
  4. LEVEMIR [Suspect]
     Dosage: 74 IU, QD
     Route: 058
     Dates: start: 20070101
  5. LEVEMIR [Suspect]
     Indication: TYPE 1 DIABETES MELLITUS
     Dosage: 50 IU, QD
  6. LISPRO INSULIN [Suspect]
     Indication: TYPE 1 DIABETES MELLITUS
     Dosage: 15 IU, TID

REACTIONS (6)
  - GESTATIONAL HYPERTENSION [None]
  - GLYCOSYLATED HAEMOGLOBIN INCREASED [None]
  - DRUG EXPOSURE DURING PREGNANCY [None]
  - PROTEINURIA [None]
  - CONDITION AGGRAVATED [None]
  - POLYHYDRAMNIOS [None]
